FAERS Safety Report 10408706 (Version 1)
Quarter: 2014Q3

REPORT INFORMATION
  Report Type: Spontaneous
  Country: US (occurrence: None)
  Receive Date: 20140822
  Receipt Date: 20140822
  Transmission Date: 20150326
  Serious: Yes (Disabling)
  Sender: FDA-Public Use
  Company Number: None

PATIENT
  Age: 42 Year
  Sex: Male
  Weight: 63.5 kg

DRUGS (3)
  1. METHYLPHENIDATE [Suspect]
     Active Substance: METHYLPHENIDATE
     Indication: FATIGUE
     Dosage: 1  THREE TIMES DAILY TAKEN BY MOUTH?30 DAY SUPPLY AUG-SEPT
     Route: 048
  2. METHYLPHENIDATE [Suspect]
     Active Substance: METHYLPHENIDATE
     Indication: SLEEP DISORDER
     Dosage: 1  THREE TIMES DAILY TAKEN BY MOUTH?30 DAY SUPPLY AUG-SEPT
     Route: 048
  3. METHYLPHENIDATE [Suspect]
     Active Substance: METHYLPHENIDATE
     Indication: ATTENTION DEFICIT/HYPERACTIVITY DISORDER
     Dosage: 1  THREE TIMES DAILY TAKEN BY MOUTH?30 DAY SUPPLY AUG-SEPT
     Route: 048

REACTIONS (6)
  - Lethargy [None]
  - Product quality issue [None]
  - Drug ineffective [None]
  - Product substitution issue [None]
  - Anxiety [None]
  - Malaise [None]

NARRATIVE: CASE EVENT DATE: 20140811
